FAERS Safety Report 6112729-8 (Version None)
Quarter: 2009Q1

REPORT INFORMATION
  Report Type: 
  Country: None (occurrence: None)
  Receive Date: 20090312
  Receipt Date: 20090302
  Transmission Date: 20090719
  Serious: Yes (Other)
  Sender: FDA-Public Use
  Company Number: US-AMGEN-US261964

PATIENT
  Sex: Male
  Weight: 139.5 kg

DRUGS (12)
  1. ROMIPLOSTIM [Suspect]
     Indication: IDIOPATHIC THROMBOCYTOPENIC PURPURA
     Route: 058
     Dates: start: 20070405
  2. CORGARD [Concomitant]
     Route: 048
     Dates: start: 20060118
  3. DECADRON [Concomitant]
     Dates: start: 20070808, end: 20080125
  4. IMMUNOGLOBULINS [Concomitant]
     Route: 042
     Dates: start: 20071031
  5. TYLENOL [Concomitant]
     Route: 048
     Dates: start: 20071114
  6. PROTONIX [Concomitant]
     Route: 048
     Dates: start: 20080116
  7. ATIVAN [Concomitant]
     Dates: start: 20080109, end: 20080109
  8. MORPHINE SULFATE [Concomitant]
     Route: 058
     Dates: start: 20080109, end: 20080109
  9. LASIX [Concomitant]
     Route: 048
     Dates: start: 20070616
  10. MYCELEX [Concomitant]
     Route: 048
     Dates: start: 20071025, end: 20080223
  11. BENADRYL [Concomitant]
     Route: 048
     Dates: start: 20080124, end: 20080125
  12. PENICILLIN NOS [Concomitant]
     Route: 048
     Dates: start: 20080105, end: 20080111

REACTIONS (2)
  - MEGAKARYOCYTES INCREASED [None]
  - THROMBOCYTOPENIA [None]
